FAERS Safety Report 4589865-0 (Version None)
Quarter: 2005Q1

REPORT INFORMATION
  Report Type: 
  Country: None (occurrence: None)
  Receive Date: 20050223
  Receipt Date: 20030407
  Transmission Date: 20050727
  Serious: Yes (Life-Threatening, Hospitalization, Other)
  Sender: FDA-Public Use
  Company Number: US-MERCK-0304USA00758

PATIENT
  Age: 48 Year
  Sex: Male
  Weight: 75 kg

DRUGS (8)
  1. VIOXX [Suspect]
     Indication: ARTHRALGIA
     Route: 048
     Dates: start: 19980101
  2. VIOXX [Suspect]
     Route: 048
  3. VIOXX [Suspect]
     Route: 048
  4. ZOLOFT [Concomitant]
     Route: 065
     Dates: start: 20030101, end: 20030101
  5. ZOLOFT [Concomitant]
     Route: 065
     Dates: start: 20030101
  6. AVALIDE [Concomitant]
     Route: 065
  7. CLARITIN [Concomitant]
     Route: 065
  8. PROZAC [Concomitant]
     Route: 065

REACTIONS (50)
  - AFFECTIVE DISORDER [None]
  - ANAEMIA [None]
  - ANXIETY [None]
  - ARTHRALGIA [None]
  - AUTOTRANSFUSION [None]
  - BACK INJURY [None]
  - BACK PAIN [None]
  - BLOOD CHOLESTEROL INCREASED [None]
  - BLOOD TRIGLYCERIDES INCREASED [None]
  - BLOOD URINE PRESENT [None]
  - BUTTOCK PAIN [None]
  - CHRONIC FATIGUE SYNDROME [None]
  - CORONARY ARTERY DISEASE [None]
  - CYST [None]
  - DEPRESSION [None]
  - DRUG DEPENDENCE [None]
  - DRUG DETOXIFICATION [None]
  - DRUG WITHDRAWAL SYNDROME [None]
  - DYSPEPSIA [None]
  - DYSPNOEA [None]
  - FACET JOINT SYNDROME [None]
  - GASTRIC ULCER [None]
  - GASTROOESOPHAGEAL REFLUX DISEASE [None]
  - HAEMATOCHEZIA [None]
  - HAEMATOCRIT ABNORMAL [None]
  - HEADACHE [None]
  - HELICOBACTER PYLORI IDENTIFICATION TEST POSITIVE [None]
  - HIGH DENSITY LIPOPROTEIN ABNORMAL [None]
  - HYPERLIPIDAEMIA [None]
  - HYPERTENSION [None]
  - INJURY [None]
  - INSOMNIA [None]
  - INTERVERTEBRAL DISC DEGENERATION [None]
  - INTERVERTEBRAL DISC DISORDER [None]
  - INTERVERTEBRAL DISC PROTRUSION [None]
  - MOOD ALTERED [None]
  - MYELOPATHY [None]
  - NERVOUSNESS [None]
  - OSTEOARTHRITIS [None]
  - PARAESTHESIA [None]
  - PEPTIC ULCER [None]
  - PROTEIN URINE PRESENT [None]
  - RADICULAR PAIN [None]
  - RENAL FAILURE [None]
  - RHINITIS ALLERGIC [None]
  - SLEEP APNOEA SYNDROME [None]
  - SPINAL OSTEOARTHRITIS [None]
  - SPONDYLOLISTHESIS [None]
  - SPONDYLOLYSIS [None]
  - UROBILIN URINE PRESENT [None]
